FAERS Safety Report 20477019 (Version 1)
Quarter: 2022Q1

REPORT INFORMATION
  Report Type: Spontaneous
  Country: US (occurrence: US)
  Receive Date: 20220215
  Receipt Date: 20220215
  Transmission Date: 20220423
  Serious: No
  Sender: FDA-Public Use
  Company Number: US-SA-SAC20220210000582

PATIENT
  Sex: Female

DRUGS (6)
  1. DUPIXENT [Suspect]
     Active Substance: DUPILUMAB
     Indication: Asthma
     Dosage: 300 MG, QOW
  2. PROAIR HFA [Concomitant]
     Active Substance: ALBUTEROL SULFATE
  3. SPIRIVA [Concomitant]
     Active Substance: TIOTROPIUM BROMIDE MONOHYDRATE
  4. EFFEXOR [Concomitant]
     Active Substance: VENLAFAXINE HYDROCHLORIDE
  5. LAMOTRIGINE [Concomitant]
     Active Substance: LAMOTRIGINE
  6. BREO ELLIPTA [Concomitant]
     Active Substance: FLUTICASONE FUROATE\VILANTEROL TRIFENATATE

REACTIONS (1)
  - Product use issue [Unknown]
